FAERS Safety Report 17788097 (Version 1)
Quarter: 2020Q2

REPORT INFORMATION
  Report Type: Spontaneous
  Country: US (occurrence: US)
  Receive Date: 20200514
  Receipt Date: 20200514
  Transmission Date: 20200714
  Serious: Yes (Hospitalization, Other)
  Sender: FDA-Public Use
  Company Number: US-VALIDUS PHARMACEUTICALS LLC-US-2020VAL000369

PATIENT

DRUGS (9)
  1. LASIX [Suspect]
     Active Substance: FUROSEMIDE
     Indication: PRODUCT USED FOR UNKNOWN INDICATION
     Dosage: UNK
     Route: 065
  2. WARFARIN [Concomitant]
     Active Substance: WARFARIN
     Indication: INTERNATIONAL NORMALISED RATIO FLUCTUATION
     Dosage: UNK
  3. UPADACITINIB [Suspect]
     Active Substance: UPADACITINIB
     Indication: RHEUMATOID ARTHRITIS
     Dosage: 15 MG, QD
     Route: 048
     Dates: start: 20191031
  4. CELEBREX [Concomitant]
     Active Substance: CELECOXIB
     Indication: RHEUMATOID ARTHRITIS
     Dosage: UNK
  5. LASIX [Suspect]
     Active Substance: FUROSEMIDE
     Dosage: 80 MG, UNK
     Route: 065
     Dates: start: 20191231
  6. DILAUDID [Concomitant]
     Active Substance: HYDROMORPHONE HYDROCHLORIDE
     Indication: BACK PAIN
     Dosage: UNK
  7. LYRICA [Concomitant]
     Active Substance: PREGABALIN
     Indication: MUSCLE SPASMS
     Dosage: UNK
  8. SOTALOL. [Concomitant]
     Active Substance: SOTALOL
     Indication: ATRIAL FIBRILLATION
     Dosage: UNK
  9. VITAMIN D3 [Concomitant]
     Active Substance: CHOLECALCIFEROL
     Indication: VITAMIN SUPPLEMENTATION
     Dosage: UNK

REACTIONS (10)
  - Cardiac failure congestive [Recovered/Resolved]
  - Breath sounds abnormal [Recovered/Resolved]
  - Dyspnoea [Recovered/Resolved]
  - Fatigue [Unknown]
  - Skin discolouration [Recovered/Resolved]
  - Speech disorder [Recovered/Resolved]
  - Cough [Recovered/Resolved]
  - Pulmonary oedema [Recovered/Resolved]
  - Pollakiuria [Unknown]
  - Pain [Not Recovered/Not Resolved]

NARRATIVE: CASE EVENT DATE: 20191231
